FAERS Safety Report 5798334-1 (Version None)
Quarter: 2008Q3

REPORT INFORMATION
  Report Type: 
  Country: None (occurrence: None)
  Receive Date: 20080702
  Receipt Date: 20080626
  Transmission Date: 20090109
  Serious: Yes (Hospitalization)
  Sender: FDA-Public Use
  Company Number: US-GILEAD-2008-0017071

PATIENT
  Sex: Female

DRUGS (9)
  1. LETAIRIS [Suspect]
     Indication: PULMONARY ARTERIAL HYPERTENSION
     Route: 048
     Dates: start: 20070901, end: 20080219
  2. REVATIO [Concomitant]
     Route: 048
     Dates: end: 20071024
  3. FUROSEMIDE [Concomitant]
     Route: 048
  4. OXYGEN [Concomitant]
     Dosage: 4-6 LITERS
  5. ASPIRIN [Concomitant]
     Route: 048
  6. OMEPRAZOLE [Concomitant]
     Route: 048
  7. FOSAMAX [Concomitant]
     Route: 048
  8. CALCIUM [Concomitant]
  9. VITAMIN D [Concomitant]

REACTIONS (1)
  - PULMONARY CONGESTION [None]
